FAERS Safety Report 9131620 (Version 1)
Quarter: 2013Q1

REPORT INFORMATION
  Report Type: Report from Study
  Country: US (occurrence: US)
  Receive Date: 20130301
  Receipt Date: 20130301
  Transmission Date: 20140127
  Serious: No
  Sender: FDA-Public Use
  Company Number: US-MYLANLABS-2012S1009667

PATIENT
  Age: 18 Year
  Sex: Female

DRUGS (4)
  1. AMNESTEEM CAPSULES [Suspect]
     Indication: ACNE
     Route: 048
     Dates: start: 20120110, end: 20120212
  2. AMNESTEEM CAPSULES [Suspect]
     Indication: ACNE
     Route: 048
     Dates: start: 20120213, end: 20120416
  3. ORAL CONTRACEPTIVE NOS [Concomitant]
  4. ALLEGRA [Concomitant]

REACTIONS (4)
  - Emotional disorder [Unknown]
  - Headache [Unknown]
  - Diarrhoea [Unknown]
  - Medial tibial stress syndrome [Unknown]
